FAERS Safety Report 6373170-6 (Version None)
Quarter: 2009Q3

REPORT INFORMATION
  Report Type: 
  Country: None (occurrence: None)
  Receive Date: 20090924
  Receipt Date: 20090120
  Transmission Date: 20100115
  Serious: No
  Sender: FDA-Public Use
  Company Number: US-ASTRAZENECA-2009UW01866

PATIENT
  Age: 18338 Day
  Sex: Female

DRUGS (1)
  1. SEROQUEL [Suspect]
     Route: 048
     Dates: start: 20080609, end: 20090106

REACTIONS (4)
  - DEPRESSION [None]
  - INSOMNIA [None]
  - MOOD SWINGS [None]
  - TACHYPHRENIA [None]
